FAERS Safety Report 7104009-9 (Version None)
Quarter: 2010Q4

REPORT INFORMATION
  Report Type: 
  Country: None (occurrence: None)
  Receive Date: 20101115
  Receipt Date: 20100512
  Transmission Date: 20110411
  Serious: No
  Sender: FDA-Public Use
  Company Number: US-ALLERGAN-1006292US

PATIENT
  Age: 41 Year
  Sex: Female

DRUGS (1)
  1. BOTOX COSMETIC [Suspect]
     Indication: SKIN WRINKLING
     Dosage: 1.5 UNITS, SINGLE
     Route: 030
     Dates: start: 20100429, end: 20100429

REACTIONS (3)
  - CONTUSION [None]
  - EYELID PTOSIS [None]
  - HAEMORRHAGE [None]
